FAERS Safety Report 6477332-9 (Version None)
Quarter: 2009Q4

REPORT INFORMATION
  Report Type: 
  Country: None (occurrence: None)
  Receive Date: 20091207
  Receipt Date: 20091123
  Transmission Date: 20100525
  Serious: Yes (Death, Hospitalization)
  Sender: FDA-Public Use
  Company Number: BR-AMGEN-US378174

PATIENT
  Sex: Male

DRUGS (1)
  1. ENBREL [Suspect]
     Indication: DRUG USE FOR UNKNOWN INDICATION
     Dosage: UNSPECIFIED
     Route: 058

REACTIONS (6)
  - DEATH [None]
  - DRUG INEFFECTIVE [None]
  - HYPERSENSITIVITY [None]
  - MASS [None]
  - PNEUMONIA [None]
  - PRURITUS [None]
